FAERS Safety Report 19742148 (Version 2)
Quarter: 2021Q3

REPORT INFORMATION
  Report Type: Spontaneous
  Country: PK (occurrence: PK)
  Receive Date: 20210825
  Receipt Date: 20210920
  Transmission Date: 20211014
  Serious: Yes (Death)
  Sender: FDA-Public Use
  Company Number: PK-NOVOPROD-839204

PATIENT
  Age: 67 Year
  Sex: Female
  Weight: 67 kg

DRUGS (1)
  1. NOVOMIX 30 FLEXPEN [Suspect]
     Active Substance: INSULIN ASPART
     Indication: TYPE 2 DIABETES MELLITUS
     Dosage: 22 IU, QD
     Route: 058
     Dates: start: 20181124

REACTIONS (1)
  - Death [Fatal]

NARRATIVE: CASE EVENT DATE: 20210726
